FAERS Safety Report 12161422 (Version 2)
Quarter: 2016Q1

REPORT INFORMATION
  Report Type: Report from Study
  Country: VN (occurrence: VN)
  Receive Date: 20160308
  Receipt Date: 20160328
  Transmission Date: 20160526
  Serious: Yes (Other)
  Sender: FDA-Public Use
  Company Number: VN-ROCHE-1722284

PATIENT
  Age: 74 Year
  Sex: Male

DRUGS (4)
  1. BEVACIZUMAB [Suspect]
     Active Substance: BEVACIZUMAB
     Indication: LUNG ADENOCARCINOMA
  2. CARBOPLATIN. [Suspect]
     Active Substance: CARBOPLATIN
     Indication: NON-SMALL CELL LUNG CANCER
     Dosage: 3 WEEK-CYCLE FOR 6 CYCLES
     Route: 041
     Dates: start: 200804, end: 200809
  3. PACLITAXEL. [Suspect]
     Active Substance: PACLITAXEL
     Indication: NON-SMALL CELL LUNG CANCER
     Dosage: 3 WEEK-CYCLE FOR 6 CYCLES
     Route: 041
     Dates: start: 200804, end: 200809
  4. BEVACIZUMAB [Suspect]
     Active Substance: BEVACIZUMAB
     Indication: NON-SMALL CELL LUNG CANCER
     Dosage: 3 WEEK-CYCLE
     Route: 041
     Dates: start: 200804

REACTIONS (3)
  - Urinary tract infection [Unknown]
  - White blood cell count decreased [Unknown]
  - Pyrexia [Unknown]
